FAERS Safety Report 4278519-6 (Version None)
Quarter: 2004Q1

REPORT INFORMATION
  Report Type: 
  Country: None (occurrence: None)
  Receive Date: 20040121
  Receipt Date: 20031229
  Transmission Date: 20041129
  Serious: Yes (Hospitalization)
  Sender: FDA-Public Use
  Company Number: USA031255413

PATIENT
  Age: 69 Year
  Sex: Female
  Weight: 53 kg

DRUGS (3)
  1. HUMALOG [Suspect]
     Dosage: 12 U/DAY
     Dates: start: 19960101
  2. HUMULIN N [Suspect]
     Dosage: 14 U/2 DAY
     Dates: start: 19960101
  3. HUMULIN R [Suspect]
     Dates: end: 19960101

REACTIONS (4)
  - BLOOD GLUCOSE DECREASED [None]
  - BLOOD GLUCOSE INCREASED [None]
  - UTERINE CYST [None]
  - WEIGHT DECREASED [None]
